FAERS Safety Report 11420224 (Version 2)
Quarter: 2015Q3

REPORT INFORMATION
  Report Type: Spontaneous
  Country: US (occurrence: US)
  Receive Date: 20150826
  Receipt Date: 20150910
  Transmission Date: 20151125
  Serious: Yes (Hospitalization, Other)
  Sender: FDA-Public Use
  Company Number: US-SHIRE-US201510556

PATIENT
  Age: 11 Year
  Sex: Male
  Weight: 33.11 kg

DRUGS (1)
  1. VYVANSE [Suspect]
     Active Substance: LISDEXAMFETAMINE DIMESYLATE
     Indication: ATTENTION DEFICIT/HYPERACTIVITY DISORDER
     Dosage: 30 MG, 1X/DAY:QD (DAILY)
     Route: 048
     Dates: start: 2013

REACTIONS (12)
  - Increased appetite [Not Recovered/Not Resolved]
  - Logorrhoea [Recovered/Resolved]
  - Product quality issue [Unknown]
  - Disturbance in social behaviour [Recovered/Resolved]
  - Impulsive behaviour [Recovered/Resolved]
  - Insomnia [Recovered/Resolved]
  - Self injurious behaviour [Recovered/Resolved]
  - Aggression [Recovered/Resolved]
  - Decreased appetite [Recovered/Resolved]
  - Personality change [Recovered/Resolved]
  - Disturbance in attention [Not Recovered/Not Resolved]
  - Agitation [Recovering/Resolving]

NARRATIVE: CASE EVENT DATE: 2013
